FAERS Safety Report 7396188-3 (Version None)
Quarter: 2011Q2

REPORT INFORMATION
  Report Type: 
  Country: None (occurrence: None)
  Receive Date: 20110406
  Receipt Date: 20110324
  Transmission Date: 20111010
  Serious: Yes (Life-Threatening, Hospitalization, Other)
  Sender: FDA-Public Use
  Company Number: US-ELI_LILLY_AND_COMPANY-US201009004346

PATIENT
  Sex: Male
  Weight: 80.7 kg

DRUGS (19)
  1. LIDODERM [Concomitant]
     Indication: BACK PAIN
  2. PRILOSEC [Concomitant]
     Dosage: 20 MG, BID
     Route: 048
  3. SPIRIVA [Concomitant]
     Dosage: UNK, QD
     Route: 055
  4. DIOVAN [Concomitant]
  5. ASPIRIN [Concomitant]
     Dosage: 81 MG, QD
     Route: 048
  6. FORTEO [Suspect]
     Dosage: UNK, UNKNOWN
     Route: 065
  7. DOCUSATE SODIUM [Concomitant]
  8. HYDROCHLOROTHIAZIDE [Concomitant]
     Dosage: 12.5 MG, QD
  9. NASONEX [Concomitant]
     Dosage: UNK, QD
  10. ALBUTEROL [Concomitant]
     Dosage: UNK, EVERY 6 HRS
     Route: 055
  11. DEPAKOTE ER [Concomitant]
     Dosage: 500 MG, UNK
     Route: 048
  12. MULTI-VITAMIN [Concomitant]
     Dosage: UNK, QD
  13. ATENOLOL [Concomitant]
     Dosage: 50 MG, QD
     Route: 048
  14. AVAPRO [Concomitant]
     Dosage: 300 MG, UNK
     Route: 048
  15. NORVASC [Concomitant]
     Dosage: 5 MG, QD
     Route: 048
  16. LIPITOR [Concomitant]
     Dosage: 40 MG, QD
  17. LORATADINE [Concomitant]
     Dosage: 10 MG, QD
     Route: 048
  18. CELEXA [Concomitant]
     Dosage: 40 MG, UNK
     Route: 048
  19. VITAMIN D [Concomitant]
     Dosage: 2000 MG, QD
     Route: 048

REACTIONS (11)
  - DIVERTICULAR PERFORATION [None]
  - DECREASED APPETITE [None]
  - BACTERAEMIA [None]
  - ATRIAL FIBRILLATION [None]
  - ELECTROCARDIOGRAM QT PROLONGED [None]
  - RESPIRATORY DISTRESS [None]
  - HYPOTENSION [None]
  - SMALL INTESTINAL OBSTRUCTION [None]
  - ELECTROLYTE IMBALANCE [None]
  - HYPOXIA [None]
  - ATELECTASIS [None]
